FAERS Safety Report 17189351 (Version 1)
Quarter: 2019Q4

REPORT INFORMATION
  Report Type: Report from Study
  Country: None (occurrence: BR)
  Receive Date: 20191223
  Receipt Date: 20191223
  Transmission Date: 20200122
  Serious: Yes (Hospitalization, Other)
  Sender: FDA-Public Use
  Company Number: BR-ABBVIE-19K-020-3200261-00

PATIENT
  Sex: Female
  Weight: 62 kg

DRUGS (1)
  1. HUMIRA [Suspect]
     Active Substance: ADALIMUMAB
     Indication: PSORIATIC ARTHROPATHY
     Route: 058
     Dates: start: 20171114

REACTIONS (11)
  - Skin lesion [Unknown]
  - Dyspnoea [Unknown]
  - Blister [Unknown]
  - Pain [Unknown]
  - Urinary tract infection [Recovered/Resolved]
  - Post procedural haemorrhage [Recovered/Resolved]
  - Wound [Unknown]
  - Haemoglobin decreased [Unknown]
  - Mammoplasty [Unknown]
  - Back pain [Unknown]
  - Neck pain [Unknown]

NARRATIVE: CASE EVENT DATE: 2019
